FAERS Safety Report 24811498 (Version 1)
Quarter: 2025Q1

REPORT INFORMATION
  Report Type: Report from Study
  Country: US (occurrence: US)
  Receive Date: 20250106
  Receipt Date: 20250106
  Transmission Date: 20250408
  Serious: No
  Sender: ASTELLAS
  Company Number: US-ASTELLAS-2024US001772

PATIENT
  Age: 65 Year
  Sex: Female

DRUGS (2)
  1. FEZOLINETANT [Suspect]
     Active Substance: FEZOLINETANT
     Indication: Flushing
     Dosage: AT NIGHT
     Route: 048
     Dates: start: 2024
  2. FEZOLINETANT [Suspect]
     Active Substance: FEZOLINETANT
     Dosage: AT NIGHT
     Route: 048
     Dates: start: 20230714, end: 20240731

REACTIONS (1)
  - Weight increased [Unknown]
